FAERS Safety Report 5035906-6 (Version None)
Quarter: 2006Q2

REPORT INFORMATION
  Report Type: 
  Country: None (occurrence: None)
  Receive Date: 20060622
  Receipt Date: 20060615
  Transmission Date: 20061013
  Serious: Yes (Hospitalization)
  Sender: FDA-Public Use
  Company Number: STA-AE-06-043

PATIENT
  Age: 7 Year
  Sex: Male
  Weight: 21.3 kg

DRUGS (7)
  1. FUROSEMIDE [Suspect]
     Indication: POLYURIA
     Dosage: 2 MG IV
     Route: 042
  2. FUROSEMIDE [Suspect]
     Dosage: 10MG IV
  3. POLYETHYLENE GLYCOL [Concomitant]
  4. OXYBUTYNIN CHLORIDE [Concomitant]
  5. DEXTRANOMER/HYALURONIC ACID COPOLYMER [Concomitant]
  6. SEVOFLURANE [Concomitant]
  7. LORAZEPAM [Concomitant]

REACTIONS (8)
  - BLOOD OSMOLARITY DECREASED [None]
  - BLOOD SODIUM INCREASED [None]
  - CONVULSION [None]
  - INAPPROPRIATE ANTIDIURETIC HORMONE SECRETION [None]
  - NAUSEA [None]
  - URINE OSMOLARITY DECREASED [None]
  - VOMITING [None]
  - WATER INTOXICATION [None]
